FAERS Safety Report 7295081-4 (Version None)
Quarter: 2011Q1

REPORT INFORMATION
  Report Type: 
  Country: None (occurrence: None)
  Receive Date: 20110216
  Receipt Date: 20110209
  Transmission Date: 20110831
  Serious: Yes (Death)
  Sender: FDA-Public Use
  Company Number: JP-ASTRAZENECA-2011SE08383

PATIENT
  Age: 96 Year
  Sex: Female

DRUGS (4)
  1. ECARD COMBINATION [Suspect]
     Indication: HYPERTENSION
     Route: 048
     Dates: start: 20091027, end: 20100228
  2. ALOSENN [Concomitant]
     Route: 048
  3. LASIX [Concomitant]
     Route: 065
  4. MAGNESIUM OXIDE [Concomitant]
     Route: 048

REACTIONS (1)
  - CARDIAC FAILURE [None]
